FAERS Safety Report 19372039 (Version 1)
Quarter: 2021Q2

REPORT INFORMATION
  Report Type: Spontaneous
  Country: CA (occurrence: CA)
  Receive Date: 20210604
  Receipt Date: 20210604
  Transmission Date: 20210717
  Serious: Yes (Hospitalization, Other)
  Sender: FDA-Public Use
  Company Number: CA-TEVA-2021-CA-1917159

PATIENT
  Age: 73 Year
  Sex: Male

DRUGS (20)
  1. AMIODARONE [Suspect]
     Active Substance: AMIODARONE
     Indication: ATRIAL FIBRILLATION
     Dosage: 200 MILLIGRAM DAILY;
     Route: 065
  2. METOLAZONE. [Suspect]
     Active Substance: METOLAZONE
     Indication: DIURETIC THERAPY
     Route: 065
  3. COLCHICINE. [Concomitant]
     Active Substance: COLCHICINE
  4. TYLENOL [Concomitant]
     Active Substance: ACETAMINOPHEN
  5. FUROSEMIDE. [Concomitant]
     Active Substance: FUROSEMIDE
  6. EPREX STERILE SOLUTION [Concomitant]
  7. INSULIN GLARGINE [Concomitant]
     Active Substance: INSULIN GLARGINE
  8. NITROGLYCERIN. [Concomitant]
     Active Substance: NITROGLYCERIN
  9. TRAJENTA [Concomitant]
     Active Substance: LINAGLIPTIN
  10. ASA [Concomitant]
     Active Substance: ASPIRIN
     Route: 065
  11. CALCITRIOL. [Concomitant]
     Active Substance: CALCITRIOL
  12. FLUTICASONE. [Concomitant]
     Active Substance: FLUTICASONE
  13. ATORVASTATIN [Concomitant]
     Active Substance: ATORVASTATIN
  14. METOLAZONE. [Concomitant]
     Active Substance: METOLAZONE
  15. METOPROLOL. [Interacting]
     Active Substance: METOPROLOL
     Indication: BLOOD PRESSURE MANAGEMENT
     Dosage: 5 DOSAGE FORMS DAILY;
     Route: 065
  16. METOPROLOL. [Concomitant]
     Active Substance: METOPROLOL
     Route: 065
  17. VITAMIN B12 [Concomitant]
     Active Substance: CYANOCOBALAMIN
  18. DOCUSATE SODIUM. [Concomitant]
     Active Substance: DOCUSATE SODIUM
  19. FERROUS FUMARATE [Concomitant]
     Active Substance: FERROUS FUMARATE
  20. SALBUTAMOL [Concomitant]
     Active Substance: ALBUTEROL

REACTIONS (16)
  - Blood creatinine abnormal [Not Recovered/Not Resolved]
  - Constipation [Not Recovered/Not Resolved]
  - Fatigue [Not Recovered/Not Resolved]
  - Renal impairment [Not Recovered/Not Resolved]
  - Retching [Not Recovered/Not Resolved]
  - Condition aggravated [Not Recovered/Not Resolved]
  - Nausea [Not Recovered/Not Resolved]
  - Drug interaction [Not Recovered/Not Resolved]
  - Headache [Not Recovered/Not Resolved]
  - Dysphonia [Not Recovered/Not Resolved]
  - Fall [Not Recovered/Not Resolved]
  - Tremor [Not Recovered/Not Resolved]
  - Weight decreased [Not Recovered/Not Resolved]
  - Alopecia [Not Recovered/Not Resolved]
  - Malaise [Not Recovered/Not Resolved]
  - Muscular weakness [Not Recovered/Not Resolved]
